FAERS Safety Report 12348627 (Version 1)
Quarter: 2016Q2

REPORT INFORMATION
  Report Type: Spontaneous
  Country: AT (occurrence: AT)
  Receive Date: 20160509
  Receipt Date: 20160509
  Transmission Date: 20160815
  Serious: Yes (Other)
  Sender: FDA-Public Use
  Company Number: AT-BAYER-2016-085490

PATIENT
  Age: 80 Year
  Sex: Male

DRUGS (4)
  1. ACETYLSALICYLIC ACID({=100 MG) [Suspect]
     Active Substance: ASPIRIN
  2. XARELTO [Interacting]
     Active Substance: RIVAROXABAN
     Dosage: 20 MG, UNK
  3. XARELTO [Interacting]
     Active Substance: RIVAROXABAN
     Dosage: 15 MG, UNK
  4. PLAVIX [Concomitant]
     Active Substance: CLOPIDOGREL BISULFATE

REACTIONS (2)
  - Lung neoplasm malignant [None]
  - Blood urine present [None]
